FAERS Safety Report 4865207-8 (Version None)
Quarter: 2005Q4

REPORT INFORMATION
  Report Type: 
  Country: None (occurrence: None)
  Receive Date: 20051223
  Receipt Date: 20051124
  Transmission Date: 20060501
  Serious: Yes (Other)
  Sender: FDA-Public Use
  Company Number: JP-JPN-A20052867

PATIENT
  Age: 34 Year
  Sex: Female

DRUGS (2)
  1. FLUTIDE DISKUS [Suspect]
     Indication: ASTHMA
     Route: 055
     Dates: start: 20050825
  2. MEPTIN AIR [Suspect]
     Indication: ASTHMA
     Route: 055
     Dates: start: 20031002

REACTIONS (6)
  - AMNESIA [None]
  - CHILLS [None]
  - CONVULSION [None]
  - HEADACHE [None]
  - LOCAL SWELLING [None]
  - LOSS OF CONSCIOUSNESS [None]
